FAERS Safety Report 10721866 (Version 3)
Quarter: 2015Q3

REPORT INFORMATION
  Report Type: Spontaneous
  Country: US (occurrence: US)
  Receive Date: 20150119
  Receipt Date: 20150819
  Transmission Date: 20151125
  Serious: No
  Sender: FDA-Public Use
  Company Number: US-GILEAD-2015-0132450

PATIENT
  Age: 72 Year
  Sex: Female

DRUGS (1)
  1. LETAIRIS [Suspect]
     Active Substance: AMBRISENTAN
     Indication: PRODUCT USED FOR UNKNOWN INDICATION
     Dosage: 10 MG, QD
     Route: 065
     Dates: start: 20080701

REACTIONS (6)
  - Weight increased [Unknown]
  - Dyspnoea exertional [Unknown]
  - Sinus disorder [Unknown]
  - Dizziness [Unknown]
  - Headache [Not Recovered/Not Resolved]
  - Dyspnoea [Unknown]
